FAERS Safety Report 13023243 (Version 1)
Quarter: 2016Q4

REPORT INFORMATION
  Report Type: Spontaneous
  Country: IT (occurrence: IT)
  Receive Date: 20161213
  Receipt Date: 20161213
  Transmission Date: 20170207
  Serious: Yes (Hospitalization, Other)
  Sender: FDA-Public Use
  Company Number: IT-ASTRAZENECA-2016SF29320

PATIENT
  Age: 29398 Day
  Sex: Female

DRUGS (7)
  1. LETROZOLE. [Suspect]
     Active Substance: LETROZOLE
     Route: 065
  2. LANSOX [Suspect]
     Active Substance: LANSOPRAZOLE
     Route: 065
  3. PRITOR [Suspect]
     Active Substance: TELMISARTAN
     Route: 065
  4. SIMESTAT [Suspect]
     Active Substance: ROSUVASTATIN CALCIUM
     Route: 048
  5. ACTONEL [Suspect]
     Active Substance: RISEDRONATE SODIUM
     Route: 065
  6. DIBASE [Suspect]
     Active Substance: CHOLECALCIFEROL
     Route: 065
  7. CARTEOL [Suspect]
     Active Substance: CARTEOLOL
     Route: 065

REACTIONS (6)
  - Breast cancer [Unknown]
  - Hypercholesterolaemia [Unknown]
  - Malaise [Unknown]
  - Blood pressure increased [Unknown]
  - Asthenia [Unknown]
  - Osteoporosis [Unknown]

NARRATIVE: CASE EVENT DATE: 20160413
